FAERS Safety Report 5069054-6 (Version None)
Quarter: 2006Q3

REPORT INFORMATION
  Report Type: 
  Country: None (occurrence: None)
  Receive Date: 20060802
  Receipt Date: 20060717
  Transmission Date: 20061208
  Serious: Yes (Other)
  Sender: FDA-Public Use
  Company Number: BE-MERCK-0607BEL00015

PATIENT
  Age: 48 Year
  Sex: Male
  Weight: 95 kg

DRUGS (3)
  1. COZAAR [Concomitant]
     Indication: HYPERTENSION
     Route: 048
     Dates: start: 20040101
  2. ZETIA [Suspect]
     Indication: HYPERCHOLESTEROLAEMIA
     Route: 048
     Dates: start: 20060625
  3. AMLODIPINE BESYLATE [Concomitant]
     Indication: HYPERTENSION
     Route: 048
     Dates: start: 20040101

REACTIONS (2)
  - DIABETES MELLITUS [None]
  - RENAL FAILURE [None]
